FAERS Safety Report 7301023-5 (Version None)
Quarter: 2011Q1

REPORT INFORMATION
  Report Type: 
  Country: None (occurrence: None)
  Receive Date: 20110218
  Receipt Date: 20110204
  Transmission Date: 20110831
  Serious: Yes (Disabling, Other)
  Sender: FDA-Public Use
  Company Number: US-MYLANLABS-2011S1002465

PATIENT
  Age: 74 Year
  Sex: Female

DRUGS (3)
  1. ENBREL [Interacting]
     Dates: start: 20060101
  2. PHENYTOIN SODIUM CAP [Suspect]
     Indication: EPILEPSY
     Route: 048
     Dates: start: 19980420
  3. ENBREL [Interacting]
     Dates: start: 20051001

REACTIONS (3)
  - DRUG INTERACTION [None]
  - WEIGHT DECREASED [None]
  - BLOOD ALKALINE PHOSPHATASE INCREASED [None]
